FAERS Safety Report 4730074-X (Version None)
Quarter: 2005Q3

REPORT INFORMATION
  Report Type: 
  Country: None (occurrence: None)
  Receive Date: 20050728
  Receipt Date: 20050705
  Transmission Date: 20060218
  Serious: Yes (Hospitalization, Disabling, Other)
  Sender: FDA-Public Use
  Company Number: 2005071561

PATIENT
  Age: 66 Year
  Sex: Male
  Weight: 124.7392 kg

DRUGS (22)
  1. BEXTRA [Suspect]
     Indication: PAIN IN EXTREMITY
     Dosage: 20 MG ( 20 MG, 1 IN 1 D)
     Dates: start: 20030613, end: 20050330
  2. AMARYL [Concomitant]
  3. NEURONTIN [Concomitant]
  4. PLAVIX [Concomitant]
  5. ALL OTHER THERAPEUTIC PRODUCTS (ALL OTHER THERAPEUTIC PRODUCTS) [Concomitant]
  6. LASIX [Concomitant]
  7. VALSARTAN [Concomitant]
  8. TOPROL (METOPROLOL) [Concomitant]
  9. PREVACID [Concomitant]
  10. MOBIC [Concomitant]
  11. ANTALVIC (DEXTROPROPOXYPHENE HYDROCHLORIDE) [Concomitant]
  12. ACTOS [Concomitant]
  13. WELLBUTRIN [Concomitant]
  14. ACETYLSALICYLIC ACID SRT [Concomitant]
  15. HYDRALAZINE HCL [Concomitant]
  16. ALBUTEROL [Concomitant]
  17. BUDESONIDE [Concomitant]
  18. GLYCERYL TRINITRATE (GLYCERYL TRINITRATE) [Concomitant]
  19. OXYGEN (OXYGEN) [Concomitant]
  20. PROTONIX [Concomitant]
  21. HYDROCHLOROTHIAZIDE [Concomitant]
  22. MAVIK [Concomitant]

REACTIONS (11)
  - ATROPHY [None]
  - BLOOD CHOLESTEROL INCREASED [None]
  - CARDIAC DISORDER [None]
  - CAROTID ARTERY STENOSIS [None]
  - CEREBROVASCULAR ACCIDENT [None]
  - LOCALISED INFECTION [None]
  - NUCLEAR MAGNETIC RESONANCE IMAGING ABNORMAL [None]
  - THROMBOSIS [None]
  - TRANSIENT ISCHAEMIC ATTACK [None]
  - VASCULAR BYPASS GRAFT [None]
  - WEIGHT INCREASED [None]
